FAERS Safety Report 6208832-4 (Version None)
Quarter: 2009Q2

REPORT INFORMATION
  Report Type: 
  Country: None (occurrence: None)
  Receive Date: 20090529
  Receipt Date: 20090520
  Transmission Date: 20091009
  Serious: Yes (Other)
  Sender: FDA-Public Use
  Company Number: A0780126A

PATIENT
  Age: 40 Year
  Sex: Female
  Weight: 132 kg

DRUGS (1)
  1. ADVAIR HFA [Suspect]
     Indication: DRUG USE FOR UNKNOWN INDICATION
     Route: 055

REACTIONS (4)
  - ASTHMA [None]
  - BRONCHIAL DISORDER [None]
  - CONDITION AGGRAVATED [None]
  - DYSPNOEA [None]
